FAERS Safety Report 7362199-7 (Version None)
Quarter: 2011Q1

REPORT INFORMATION
  Report Type: 
  Country: None (occurrence: None)
  Receive Date: 20110318
  Receipt Date: 20110304
  Transmission Date: 20110831
  Serious: Yes (Hospitalization)
  Sender: FDA-Public Use
  Company Number: PHHY2011GR17712

PATIENT
  Age: 65 Year
  Sex: Male

DRUGS (5)
  1. AFINITOR [Suspect]
     Dosage: 5 MG, UNK
  2. AVASTIN [Concomitant]
     Dosage: UNK
     Dates: start: 20100701
  3. AFINITOR [Suspect]
     Dosage: 10 MG, UNK
  4. AFINITOR [Suspect]
     Dosage: 10 MG, UNK
     Dates: start: 20101201
  5. TORISEL [Concomitant]

REACTIONS (2)
  - RENAL FAILURE [None]
  - RETROPERITONEAL FIBROSIS [None]
